FAERS Safety Report 7287179-1 (Version None)
Quarter: 2010Q4

REPORT INFORMATION
  Report Type: 
  Country: None (occurrence: None)
  Receive Date: 20101222
  Receipt Date: 20101118
  Transmission Date: 20110411
  Serious: Yes (Hospitalization)
  Sender: FDA-Public Use
  Company Number: UTC-002479

PATIENT
  Sex: Female

DRUGS (9)
  1. TYVASO [Suspect]
     Indication: PULMONARY ARTERIAL HYPERTENSION
     Dosage: 216 MCG (54 MCG, 4 IN 1 D) , INHALATION
     Route: 055
     Dates: start: 20100301
  2. COUMADIN [Concomitant]
  3. IRON (IRON) [Concomitant]
  4. ZOLPIDEM [Concomitant]
  5. PRISTIQ [Concomitant]
  6. POTASSIUM (POTASSIUM) [Concomitant]
  7. METOLAZONE [Concomitant]
  8. DIGOXIN [Concomitant]
  9. LASIX [Concomitant]

REACTIONS (4)
  - ASTHENIA [None]
  - DYSPNOEA [None]
  - FATIGUE [None]
  - HAEMOGLOBIN DECREASED [None]
